FAERS Safety Report 20174324 (Version 1)
Quarter: 2021Q4

REPORT INFORMATION
  Report Type: Spontaneous
  Country: VN (occurrence: VN)
  Receive Date: 20211213
  Receipt Date: 20211213
  Transmission Date: 20220303
  Serious: Yes (Other)
  Sender: FDA-Public Use
  Company Number: VN-SUN PHARMACEUTICAL INDUSTRIES LTD-2021R1-319747

PATIENT
  Age: 20 Year
  Sex: Female

DRUGS (1)
  1. BUDESONIDE\FORMOTEROL [Suspect]
     Active Substance: BUDESONIDE\FORMOTEROL
     Indication: Asthma
     Dosage: UNK (800 MICROGRAM, DAILY BUDESONIDE)
     Route: 065

REACTIONS (1)
  - Pulmonary tuberculosis [Recovering/Resolving]
